FAERS Safety Report 10489932 (Version 1)
Quarter: 2014Q3

REPORT INFORMATION
  Report Type: Spontaneous
  Country: US (occurrence: None)
  Receive Date: 20140815
  Receipt Date: 20140815
  Transmission Date: 20150326
  Serious: Yes (Hospitalization, Other)
  Sender: FDA-Public Use
  Company Number: ADR-2013-01207

PATIENT
  Age: 51 Year
  Sex: Male

DRUGS (3)
  1. BACLOFEN INTRATHECAL 500 MCG/ML [Suspect]
     Active Substance: BACLOFEN
     Indication: MUSCLE SPASTICITY
  2. MORPHINE (UNKNOWN) [Suspect]
     Active Substance: MORPHINE
  3. SALINE 1 ML/ML [Concomitant]

REACTIONS (3)
  - Fall [None]
  - Pain [None]
  - Muscle spasms [None]
